FAERS Safety Report 12786671 (Version 2)
Quarter: 2016Q3

REPORT INFORMATION
  Report Type: Spontaneous
  Country: FI (occurrence: FI)
  Receive Date: 20160927
  Receipt Date: 20160928
  Transmission Date: 20161109
  Serious: Yes (Death)
  Sender: FDA-Public Use
  Company Number: FI-ELI_LILLY_AND_COMPANY-FI201609008006

PATIENT
  Age: 65 Year
  Sex: Female

DRUGS (1)
  1. FORSTEO [Suspect]
     Active Substance: TERIPARATIDE
     Indication: PRODUCT USED FOR UNKNOWN INDICATION
     Dosage: UNK, UNKNOWN
     Route: 065
     Dates: start: 201203, end: 20150515

REACTIONS (3)
  - Dizziness [Unknown]
  - Death [Fatal]
  - Blood pressure decreased [Unknown]
